FAERS Safety Report 21838540 (Version 4)
Quarter: 2023Q1

REPORT INFORMATION
  Report Type: Report from Study
  Country: US (occurrence: US)
  Receive Date: 20230109
  Receipt Date: 20230301
  Transmission Date: 20230418
  Serious: Yes (Hospitalization)
  Sender: FDA-Public Use
  Company Number: US-PFIZER INC-PV202300000761

PATIENT
  Age: 26 Year
  Sex: Female
  Weight: 52.4 kg

DRUGS (5)
  1. DOXORUBICIN HYDROCHLORIDE [Suspect]
     Active Substance: DOXORUBICIN HYDROCHLORIDE
     Indication: Leiomyosarcoma
     Dosage: 75 MG/M2, CYCLIC (CYCLE DAY:C3D1)
     Route: 042
     Dates: start: 20221110, end: 20221222
  2. INVESTIGATIONAL PRODUCT [Suspect]
     Active Substance: INVESTIGATIONAL PRODUCT
     Indication: Leiomyosarcoma
     Dosage: 0.2 MG/KG, CYCLIC (CYCLE DAY: C3D8)
     Route: 042
     Dates: start: 20221110, end: 20221229
  3. DEXAMETHASONE [Concomitant]
     Active Substance: DEXAMETHASONE
     Dosage: 6 MG, 2 TABS ONCE A DAY ON DAY 2 AND 3 POST DOXORUBICIN INFUSION
     Route: 048
     Dates: start: 20221110
  4. TESSALON [Concomitant]
     Active Substance: BENZONATATE
     Indication: Cough
     Dosage: 100 MG, ONE CAPSULE 3 TIMES A DAY AS NEEDED
     Route: 048
     Dates: start: 20221117
  5. SENNOSIDES A AND B [Concomitant]
     Active Substance: SENNOSIDES A AND B
     Indication: Constipation
     Dosage: 8.6 MG, TWO TABS TWICE A DAY FOR 30 DAYS
     Route: 048
     Dates: start: 20221121, end: 20221220

REACTIONS (1)
  - Febrile neutropenia [Recovered/Resolved]

NARRATIVE: CASE EVENT DATE: 20221229
